FAERS Safety Report 9605470 (Version 1)
Quarter: 2013Q4

REPORT INFORMATION
  Report Type: Spontaneous
  Country: GB (occurrence: GB)
  Receive Date: 20131008
  Receipt Date: 20131008
  Transmission Date: 20140711
  Serious: Yes (Life-Threatening, Hospitalization)
  Sender: FDA-Public Use
  Company Number: GB-TEVA-436052ISR

PATIENT
  Age: 56 Year
  Sex: Male
  Weight: 96.35 kg

DRUGS (3)
  1. CO-CARELDOPA [Suspect]
     Indication: PARKINSON^S DISEASE
     Dosage: DOSAGE FORM = CARBIDOPA 50 MG + LEVODOPA 200 MG
     Route: 048
     Dates: end: 20130902
  2. ROPINIROLE [Concomitant]
  3. RASAGILINE [Concomitant]

REACTIONS (1)
  - Neutropenia [Recovered/Resolved]
